FAERS Safety Report 4287975-9 (Version None)
Quarter: 2004Q1

REPORT INFORMATION
  Report Type: 
  Country: None (occurrence: None)
  Receive Date: 20040205
  Receipt Date: 20040119
  Transmission Date: 20041129
  Serious: Yes (Congenital Anomaly)
  Sender: FDA-Public Use
  Company Number: A01200303910

PATIENT
  Sex: Male

DRUGS (2)
  1. ZOLPIDEM [Suspect]
     Indication: DEPRESSION
     Dosage: TRANSPLACENTAL
     Route: 064
     Dates: start: 20021211, end: 20030301
  2. MIRTAZAPINE [Suspect]
     Indication: DEPRESSION
     Dosage: TRANSPLACENTAL
     Route: 064
     Dates: start: 20021211, end: 20030301

REACTIONS (2)
  - CONGENITAL HAND MALFORMATION [None]
  - MATERNAL DRUGS AFFECTING FOETUS [None]
